FAERS Safety Report 8277761-7 (Version None)
Quarter: 2012Q2

REPORT INFORMATION
  Report Type: 
  Country: None (occurrence: None)
  Receive Date: 20120412
  Receipt Date: 20120409
  Transmission Date: 20120825
  Serious: Yes (Hospitalization, Other)
  Sender: FDA-Public Use
  Company Number: US-TEVA-332786USA

PATIENT
  Age: 68 Year
  Sex: Male

DRUGS (2)
  1. ZOLPIDEM [Suspect]
     Indication: MUSCULOSKELETAL PAIN
     Route: 065
  2. ZOLPIDEM [Suspect]
     Indication: SUBSTANCE ABUSE
     Dosage: 30-40MG
     Route: 065

REACTIONS (8)
  - DELUSION [None]
  - DRUG ABUSE [None]
  - ABNORMAL BEHAVIOUR [None]
  - LOSS OF CONSCIOUSNESS [None]
  - ANTISOCIAL PERSONALITY DISORDER [None]
  - SUBSTANCE ABUSE [None]
  - DRUG ADMINISTRATION ERROR [None]
  - TOXICITY TO VARIOUS AGENTS [None]
